FAERS Safety Report 7814486-3 (Version None)
Quarter: 2011Q4

REPORT INFORMATION
  Report Type: 
  Country: None (occurrence: None)
  Receive Date: 20111014
  Receipt Date: 20111011
  Transmission Date: 20120403
  Serious: Yes (Life-Threatening, Hospitalization)
  Sender: FDA-Public Use
  Company Number: PHHY2011CA88779

PATIENT
  Sex: Male

DRUGS (5)
  1. CALCITE D [Concomitant]
  2. CRESTOR [Concomitant]
  3. PREDNISONE [Concomitant]
  4. ZOLEDRONOC ACID [Suspect]
     Indication: OSTEOPOROSIS
     Dosage: 5 MG, UNK
     Route: 042
     Dates: start: 20100924
  5. VITAMIN D [Concomitant]

REACTIONS (2)
  - ESCHERICHIA INFECTION [None]
  - SEPSIS [None]
